FAERS Safety Report 5391934-2 (Version None)
Quarter: 2007Q3

REPORT INFORMATION
  Report Type: 
  Country: None (occurrence: None)
  Receive Date: 20070720
  Receipt Date: 20070711
  Transmission Date: 20080115
  Serious: Yes (Other)
  Sender: FDA-Public Use
  Company Number: JP-JNJFOC-20070606125

PATIENT
  Sex: Female
  Weight: 56 kg

DRUGS (7)
  1. REMICADE [Suspect]
     Route: 042
  2. REMICADE [Suspect]
     Route: 042
  3. REMICADE [Suspect]
     Indication: RHEUMATOID ARTHRITIS
     Route: 042
  4. RHEUMATREX [Suspect]
     Indication: RHEUMATOID ARTHRITIS
     Route: 048
  5. PREDONINE [Suspect]
     Indication: RHEUMATOID ARTHRITIS
     Route: 048
  6. WARFARIN SODIUM [Suspect]
     Indication: PROPHYLAXIS
  7. ISCOTIN [Suspect]
     Indication: ANTIBIOTIC PROPHYLAXIS

REACTIONS (1)
  - BRONCHOPULMONARY ASPERGILLOSIS [None]
